FAERS Safety Report 21663449 (Version 1)
Quarter: 2022Q4

REPORT INFORMATION
  Report Type: Spontaneous
  Country: US (occurrence: None)
  Receive Date: 20221129
  Receipt Date: 20221129
  Transmission Date: 20230113
  Serious: Yes (Death, Hospitalization)
  Sender: FDA-Public Use
  Company Number: None

PATIENT
  Age: 89 Year
  Sex: Female

DRUGS (1)
  1. SOTYKTU [Suspect]
     Active Substance: DEUCRAVACITINIB
     Indication: Psoriasis
     Dosage: FREQUENCY : DAILY;?
     Route: 048
     Dates: start: 20221117, end: 20221120

REACTIONS (5)
  - Atrial fibrillation [None]
  - Diarrhoea [None]
  - Dehydration [None]
  - Confusional state [None]
  - Urinary tract infection [None]

NARRATIVE: CASE EVENT DATE: 20221121
